FAERS Safety Report 8398568-6 (Version None)
Quarter: 2012Q2

REPORT INFORMATION
  Report Type: 
  Country: None (occurrence: None)
  Receive Date: 20120531
  Receipt Date: 20120529
  Transmission Date: 20120825
  Serious: No
  Sender: FDA-Public Use
  Company Number: US-BAYER-2012-053370

PATIENT
  Sex: Female

DRUGS (1)
  1. BEYAZ [Suspect]
     Indication: CONTRACEPTION
     Route: 048

REACTIONS (4)
  - WEIGHT INCREASED [None]
  - BREAST ENLARGEMENT [None]
  - HYPERPHAGIA [None]
  - DECREASED APPETITE [None]
